FAERS Safety Report 10238486 (Version 5)
Quarter: 2014Q4

REPORT INFORMATION
  Report Type: Report from Study
  Country: GR (occurrence: GR)
  Receive Date: 20140616
  Receipt Date: 20141031
  Transmission Date: 20150528
  Serious: Yes (Life-Threatening, Hospitalization, Disabling)
  Sender: FDA-Public Use
  Company Number: GR-B.I. PHARMACEUTICALS,INC./RIDGEFIELD-2014-BI-26349II

PATIENT
  Age: 77 Year
  Sex: Male
  Weight: 56 kg

DRUGS (9)
  1. CISPLATIN. [Suspect]
     Active Substance: CISPLATIN
     Indication: METASTATIC GASTRIC CANCER
     Dosage: 5.7143 MG
     Route: 042
     Dates: start: 20140528
  2. ARTICLOX [Concomitant]
     Indication: VITAMIN B12 DEFICIENCY
     Route: 058
     Dates: start: 20140403, end: 20140604
  3. ZURCAZOL [Concomitant]
     Indication: GASTRIC DISORDER
     Dosage: 40 MG
     Route: 048
     Dates: start: 20140403, end: 20140604
  4. 5FU [Suspect]
     Active Substance: FLUOROURACIL
     Indication: METASTATIC GASTRIC CANCER
     Dosage: 1230 MG
     Route: 042
     Dates: start: 20140528, end: 20140531
  5. TARDYFERON [Concomitant]
     Active Substance: FERROUS SULFATE\FOLIC ACID
     Indication: ANAEMIA
     Dosage: 80 MG
     Route: 048
     Dates: start: 20140403, end: 20140604
  6. BIBW 2992 [Suspect]
     Active Substance: AFATINIB
     Indication: METASTATIC GASTRIC CANCER
     Dosage: 40 MG
     Route: 048
     Dates: start: 20140530, end: 20140602
  7. ZURCAZOL [Concomitant]
     Indication: PROPHYLAXIS
  8. EMEND [Concomitant]
     Active Substance: APREPITANT
     Indication: PREMEDICATION
     Dosage: 125 MG
     Route: 048
     Dates: start: 20140528, end: 20140530
  9. ALOXI [Concomitant]
     Active Substance: PALONOSETRON HYDROCHLORIDE
     Indication: PREMEDICATION
     Dosage: DOSE PER APPLICATION AND DAILY DOSE: 250 MC
     Route: 042
     Dates: start: 20140528, end: 20140528

REACTIONS (1)
  - Cerebrovascular accident [Recovered/Resolved with Sequelae]

NARRATIVE: CASE EVENT DATE: 20140604
